FAERS Safety Report 19723210 (Version 2)
Quarter: 2021Q3

REPORT INFORMATION
  Report Type: Other
  Country: PT (occurrence: PT)
  Receive Date: 20210819
  Receipt Date: 20210909
  Transmission Date: 20211014
  Serious: Yes (Hospitalization, Other)
  Sender: FDA-Public Use
  Company Number: PT-NOVA LABORATORIES LIMITED-2115348

PATIENT
  Age: 27 Year
  Sex: Female

DRUGS (6)
  1. METHOTREXATE. [Suspect]
     Active Substance: METHOTREXATE
  2. INFLIXIMAB [Suspect]
     Active Substance: INFLIXIMAB
     Route: 042
     Dates: start: 2015
  3. INFLIXIMAB [Suspect]
     Active Substance: INFLIXIMAB
     Route: 042
  4. METHOTREXATE. [Suspect]
     Active Substance: METHOTREXATE
  5. PURIXAN [Suspect]
     Active Substance: MERCAPTOPURINE
     Indication: CROHN^S DISEASE
  6. INFLIXIMAB [Suspect]
     Active Substance: INFLIXIMAB
     Route: 042

REACTIONS (13)
  - Malnutrition [Unknown]
  - Crohn^s disease [Recovered/Resolved]
  - Overdose [Unknown]
  - Pseudopolyp [Unknown]
  - Off label use [None]
  - Product use issue [None]
  - Mucosal ulceration [Unknown]
  - Oedema [Unknown]
  - Proctalgia [Unknown]
  - Purulent discharge [Unknown]
  - Perirectal abscess [Unknown]
  - Pyrexia [Unknown]
  - Anal abscess [Unknown]

NARRATIVE: CASE EVENT DATE: 201403
